FAERS Safety Report 5629769-5 (Version None)
Quarter: 2008Q1

REPORT INFORMATION
  Report Type: 
  Country: None (occurrence: None)
  Receive Date: 20080218
  Receipt Date: 20080211
  Transmission Date: 20080703
  Serious: Yes (Hospitalization, Other)
  Sender: FDA-Public Use
  Company Number: BR-ASTRAZENECA-2007UW28787

PATIENT
  Age: 67 Year
  Sex: Female

DRUGS (7)
  1. ATENOL [Suspect]
     Indication: HYPERTENSION
     Route: 048
     Dates: start: 20000101, end: 20050101
  2. ATACAND [Suspect]
     Indication: HYPERTENSION
     Route: 048
     Dates: start: 20050101
  3. ATACAND [Suspect]
     Route: 048
  4. ATACAND HCT [Suspect]
     Indication: HYPERTENSION
     Route: 048
     Dates: start: 20050101, end: 20050101
  5. CLOPIDOGREL [Concomitant]
     Indication: ANTICOAGULANT THERAPY
     Route: 048
     Dates: start: 20050101
  6. LEXAPRO [Concomitant]
     Indication: ANXIETY
     Route: 048
     Dates: start: 20020101
  7. BROMAZEPAM [Concomitant]
     Indication: ANXIETY
     Route: 048
     Dates: start: 20020101

REACTIONS (6)
  - ANXIETY [None]
  - BALANCE DISORDER [None]
  - BRONCHOSPASM [None]
  - DYSPNOEA [None]
  - ORTHOSTATIC HYPOTENSION [None]
  - TRANSIENT ISCHAEMIC ATTACK [None]
